FAERS Safety Report 16817927 (Version 1)
Quarter: 2019Q3

REPORT INFORMATION
  Report Type: Other
  Country: IN (occurrence: IN)
  Receive Date: 20190917
  Receipt Date: 20190917
  Transmission Date: 20191005
  Serious: Yes (Death)
  Sender: FDA-Public Use
  Company Number: IN-AGG-08-2019-2060

PATIENT
  Age: 67 Year
  Sex: Female

DRUGS (2)
  1. HEPARIN [Concomitant]
     Active Substance: HEPARIN SODIUM
     Dosage: SYSTEMIC HEPARINIZATION TO MAINTAIN AN ACTIVATED CLOTTING TIME OF 250-300 SECONDS
  2. AGGRASTAT [Suspect]
     Active Substance: TIROFIBAN HYDROCHLORIDE
     Indication: ANTIPLATELET THERAPY
     Route: 041

REACTIONS (1)
  - Ruptured cerebral aneurysm [Fatal]
